FAERS Safety Report 5225263-4 (Version None)
Quarter: 2007Q1

REPORT INFORMATION
  Report Type: 
  Country: None (occurrence: None)
  Receive Date: 20070131
  Receipt Date: 20070124
  Transmission Date: 20070707
  Serious: Yes (Hospitalization)
  Sender: FDA-Public Use
  Company Number: 2006UW26303

PATIENT
  Age: 65 Year
  Sex: Male
  Weight: 116 kg

DRUGS (13)
  1. SYMBICORT PMDI [Suspect]
     Indication: CHRONIC OBSTRUCTIVE PULMONARY DISEASE
     Dosage: 2 (80/4.5 MCG) BID
     Route: 055
     Dates: start: 20060316, end: 20060731
  2. ALBUTEROL [Concomitant]
     Indication: CHRONIC OBSTRUCTIVE PULMONARY DISEASE
     Route: 055
     Dates: start: 20060316, end: 20060801
  3. ATROVENT [Concomitant]
     Indication: CHRONIC OBSTRUCTIVE PULMONARY DISEASE
     Route: 055
     Dates: start: 20060227, end: 20060820
  4. VITAMIN B-12 [Concomitant]
     Route: 048
  5. ASCORBIC ACID [Concomitant]
     Route: 048
  6. FOLIC ACID [Concomitant]
     Route: 048
  7. SIMVASTATIN [Concomitant]
     Indication: HYPERCHOLESTEROLAEMIA
     Route: 048
  8. FUROSEMIDE [Concomitant]
     Indication: POLYURIA
     Route: 048
     Dates: end: 20060807
  9. SPIRONOLACTONE [Concomitant]
     Indication: HYPERTENSION
     Route: 048
  10. ATENOLOL [Concomitant]
     Indication: HYPERTENSION
     Route: 048
     Dates: start: 20060807
  11. FELODIPINE [Concomitant]
     Indication: HYPERTENSION
     Route: 048
  12. PRILOSEC [Concomitant]
     Indication: GASTROOESOPHAGEAL REFLUX DISEASE
     Route: 048
  13. VISTARIL [Concomitant]
     Indication: ANXIETY
     Route: 048
     Dates: start: 20060101, end: 20060807

REACTIONS (1)
  - CHRONIC OBSTRUCTIVE PULMONARY DISEASE [None]
